FAERS Safety Report 10163231 (Version 4)
Quarter: 2014Q4

REPORT INFORMATION
  Report Type: Spontaneous
  Country: US (occurrence: US)
  Receive Date: 20140509
  Receipt Date: 20141105
  Transmission Date: 20150528
  Serious: Yes (Hospitalization, Disabling, Other)
  Sender: FDA-Public Use
  Company Number: US-009507513-0805USA00681

PATIENT
  Sex: Female
  Weight: 68.39 kg

DRUGS (4)
  1. [THERAPY UNSPECIFIED] [Concomitant]
     Active Substance: UNSPECIFIED INGREDIENT
     Indication: HYPERTENSION
     Dates: start: 1994
  2. [THERAPY UNSPECIFIED] [Concomitant]
     Active Substance: UNSPECIFIED INGREDIENT
     Indication: HYPERCHOLESTEROLAEMIA
     Dates: start: 1994
  3. FOSAMAX [Suspect]
     Active Substance: ALENDRONATE SODIUM
     Indication: OSTEOPENIA
     Dosage: 10 MG, QD
     Route: 048
     Dates: start: 19990203, end: 200208
  4. FOSAMAX [Suspect]
     Active Substance: ALENDRONATE SODIUM
     Dosage: 70 MG, QW
     Route: 048
     Dates: start: 20020812, end: 20060817

REACTIONS (32)
  - Nasal septum deviation [Unknown]
  - Oral cavity fistula [Not Recovered/Not Resolved]
  - Non-cardiac chest pain [Unknown]
  - Impaired healing [Unknown]
  - Cyst rupture [Unknown]
  - Osteonecrosis of jaw [Unknown]
  - Spinal osteoarthritis [Unknown]
  - Bronchitis [Unknown]
  - Fall [Unknown]
  - Osteonecrosis [Unknown]
  - Hepatic enzyme increased [Unknown]
  - Chronic sinusitis [Not Recovered/Not Resolved]
  - Weight increased [Unknown]
  - Haemoglobin decreased [Unknown]
  - Osteomyelitis [Not Recovered/Not Resolved]
  - Flank pain [Unknown]
  - Dental caries [Unknown]
  - Low turnover osteopathy [Unknown]
  - Drug hypersensitivity [Unknown]
  - Jaw disorder [Unknown]
  - Peripheral vascular disorder [Unknown]
  - Type 2 diabetes mellitus [Unknown]
  - Intramedullary rod insertion [Unknown]
  - Osteonecrosis of jaw [Unknown]
  - Upper respiratory tract infection [Unknown]
  - Oroantral fistula [Unknown]
  - Bursitis [Not Recovered/Not Resolved]
  - Femur fracture [Unknown]
  - Deafness [Unknown]
  - Oedema peripheral [Not Recovered/Not Resolved]
  - Otitis media [Recovered/Resolved]
  - Osteoporosis [Unknown]

NARRATIVE: CASE EVENT DATE: 20000608
